FAERS Safety Report 4897240-4 (Version None)
Quarter: 2006Q1

REPORT INFORMATION
  Report Type: 
  Country: None (occurrence: None)
  Receive Date: 20060127
  Receipt Date: 20060106
  Transmission Date: 20060701
  Serious: Yes (Hospitalization)
  Sender: FDA-Public Use
  Company Number: US_0509121859

PATIENT
  Age: 46 Year
  Sex: Female
  Weight: 76.6 kg

DRUGS (2)
  1. ZYPREXA [Suspect]
     Dosage: 10 MG, EACH EVENING, ORAL
     Route: 048
     Dates: start: 20010201, end: 20020101
  2. RISPERDAL    /SWE/ (RISPERIDONE) [Concomitant]

REACTIONS (4)
  - BLOOD CHOLESTEROL INCREASED [None]
  - BLOOD TRIGLYCERIDES INCREASED [None]
  - DIABETES MELLITUS [None]
  - RECTAL HAEMORRHAGE [None]
